FAERS Safety Report 5796737-2 (Version None)
Quarter: 2008Q3

REPORT INFORMATION
  Report Type: 
  Country: None (occurrence: None)
  Receive Date: 20080701
  Receipt Date: 20080627
  Transmission Date: 20090109
  Serious: Yes (Life-Threatening)
  Sender: FDA-Public Use
  Company Number: US-MERCK-0804USA01081

PATIENT
  Age: 8 Year
  Sex: Male
  Weight: 26 kg

DRUGS (4)
  1. SINGULAIR [Suspect]
     Indication: ASTHMA
     Route: 048
     Dates: start: 20071114, end: 20080328
  2. SINGULAIR [Suspect]
     Indication: HYPERSENSITIVITY
     Route: 048
     Dates: start: 20071114, end: 20080328
  3. CONCERTA [Concomitant]
     Indication: ATTENTION DEFICIT/HYPERACTIVITY DISORDER
     Route: 048
     Dates: start: 20061201, end: 20070401
  4. FLONASE [Concomitant]
     Indication: HYPERSENSITIVITY

REACTIONS (2)
  - ANXIETY [None]
  - SUICIDAL IDEATION [None]
